FAERS Safety Report 7249147-5 (Version None)
Quarter: 2011Q1

REPORT INFORMATION
  Report Type: 
  Country: None (occurrence: None)
  Receive Date: 20110128
  Receipt Date: 20101130
  Transmission Date: 20110831
  Serious: Yes (Hospitalization, Other)
  Sender: FDA-Public Use
  Company Number: BR-BAYER-2010-001177

PATIENT
  Sex: Female

DRUGS (2)
  1. YAZ [Suspect]
     Indication: ORAL CONTRACEPTION
     Dosage: 1 DF, QD
     Route: 048
     Dates: start: 20100901, end: 20101101
  2. YAZ [Suspect]
     Indication: SKIN DISORDER

REACTIONS (4)
  - COAGULOPATHY [None]
  - PULMONARY INFARCTION [None]
  - CHEST PAIN [None]
  - PULMONARY EMBOLISM [None]
